FAERS Safety Report 24753649 (Version 2)
Quarter: 2025Q1

REPORT INFORMATION
  Report Type: Spontaneous
  Country: CN (occurrence: CN)
  Receive Date: 20241219
  Receipt Date: 20250103
  Transmission Date: 20250408
  Serious: Yes (Hospitalization, Other)
  Sender: PFIZER
  Company Number: CN-PFIZER INC-PV202400163777

PATIENT
  Age: 52 Year
  Sex: Male
  Weight: 55 kg

DRUGS (6)
  1. EPIRUBICIN HYDROCHLORIDE [Suspect]
     Active Substance: EPIRUBICIN HYDROCHLORIDE
     Indication: Hepatic cancer
     Dosage: 30 MG, 1X/DAY
     Dates: start: 20240419, end: 20240419
  2. OXALIPLATIN [Suspect]
     Active Substance: OXALIPLATIN
     Indication: Hepatic cancer
     Dosage: 100 MG, 1X/DAY (INTERVENTIONAL ADMINISTRATION)
     Dates: start: 20240419, end: 20240419
  3. TORIPALIMAB [Suspect]
     Active Substance: TORIPALIMAB
     Indication: Hepatic cancer
     Dosage: 240 MG, 1X/DAY
     Route: 041
     Dates: start: 20240420, end: 20240420
  4. SODIUM CHLORIDE [Concomitant]
     Active Substance: SODIUM CHLORIDE
     Indication: Hepatic cancer
     Route: 041
     Dates: start: 20240420, end: 20240420
  5. DEXTROSE [Concomitant]
     Active Substance: DEXTROSE MONOHYDRATE
     Indication: Hepatic cancer
     Dates: start: 20240419, end: 20240419
  6. DEXTROSE [Concomitant]
     Active Substance: DEXTROSE MONOHYDRATE
     Indication: Hepatic cancer
     Dates: start: 20240419, end: 20240419

REACTIONS (1)
  - Liver injury [Recovering/Resolving]

NARRATIVE: CASE EVENT DATE: 20240726
